FAERS Safety Report 4577587-1 (Version None)
Quarter: 2005Q1

REPORT INFORMATION
  Report Type: 
  Country: None (occurrence: None)
  Receive Date: 20050210
  Receipt Date: 20050203
  Transmission Date: 20050727
  Serious: Yes (Other)
  Sender: FDA-Public Use
  Company Number: US-MERCK-0502USA00588

PATIENT
  Age: 17 Year
  Sex: Male

DRUGS (5)
  1. ELSPAR [Suspect]
     Indication: NON-HODGKIN'S LYMPHOMA
     Route: 065
  2. PREDNISONE TAB [Suspect]
     Indication: NON-HODGKIN'S LYMPHOMA
     Route: 065
  3. VINCRISTINE SULFATE [Suspect]
     Indication: NON-HODGKIN'S LYMPHOMA
     Route: 065
  4. CYTARABINE [Suspect]
     Indication: NON-HODGKIN'S LYMPHOMA
     Route: 065
  5. DAUNORUBICIN HCL [Suspect]
     Indication: NON-HODGKIN'S LYMPHOMA
     Route: 065

REACTIONS (3)
  - DUODENAL ULCER PERFORATION [None]
  - GASTROINTESTINAL ISCHAEMIA [None]
  - METASTATIC NEOPLASM [None]
